FAERS Safety Report 24692407 (Version 1)
Quarter: 2024Q4

REPORT INFORMATION
  Report Type: Spontaneous
  Country: US (occurrence: None)
  Receive Date: 20241203
  Receipt Date: 20241203
  Transmission Date: 20250114
  Serious: Yes (Death, Hospitalization)
  Sender: Public
  Company Number: None

PATIENT
  Age: 74 Year
  Sex: Male
  Weight: 93 kg

DRUGS (2)
  1. HYDROCHLOROTHIAZIDE [Suspect]
     Active Substance: HYDROCHLOROTHIAZIDE
     Indication: Hypertension
     Dosage: 25.00 MG DAILY ORAL
     Route: 048
  2. OXCARBAZEPINE [Suspect]
     Active Substance: OXCARBAZEPINE
     Indication: Seizure
     Dosage: 150 MG TWICE  DAY ORAL
     Route: 048

REACTIONS (5)
  - Hyponatraemia [None]
  - Fatigue [None]
  - Asthenia [None]
  - Decreased appetite [None]
  - Hypophagia [None]

NARRATIVE: CASE EVENT DATE: 20240709
